FAERS Safety Report 19117635 (Version 1)
Quarter: 2021Q2

REPORT INFORMATION
  Report Type: Spontaneous
  Country: NL (occurrence: NL)
  Receive Date: 20210409
  Receipt Date: 20210409
  Transmission Date: 20210717
  Serious: Yes (Hospitalization)
  Sender: FDA-Public Use
  Company Number: NL-TEVA-2021-NL-1898924

PATIENT
  Age: 77 Year
  Sex: Female
  Weight: 65 kg

DRUGS (5)
  1. VALSARTAN TABLET OMHULD 40MG / BRAND NAME NOT SPECIFIED [Suspect]
     Active Substance: VALSARTAN
     Indication: HYPERTENSION
     Dosage: 40 MILLIGRAM DAILY; THERAPY END DATE ASKU
     Dates: start: 20200728
  2. HYDROCHLOORTHIAZIDE TABLET 50MG / BRAND NAME NOT SPECIFIED [Concomitant]
     Dosage: THERAPY START DATE ASKU, THERAPY END DATE ASKU, 50 MG (MILLIGRAM)
  3. ZOPICLON TABLET 7,5MG / BRAND NAME NOT SPECIFIED [Concomitant]
     Dosage: THERAPY START DATE ASKU, THERAPY END DATE ASKU, 7,5 MG (MILLIGRAM)
  4. FLECAINIDE TABLET  50MG / BRAND NAME NOT SPECIFIED [Concomitant]
     Dosage: THERAPY START DATE ASKU, THERAPY END DATE ASKU, 50 MG (MILLIGRAM)
  5. OXAZEPAM TABLET 10MG / BRAND NAME NOT SPECIFIED [Concomitant]
     Active Substance: OXAZEPAM
     Dosage: THERAPY START DATE ASKU, THERAPY END DATE ASKU, 10 MG (MILLIGRAM)

REACTIONS (1)
  - Pancreatitis [Recovered/Resolved]

NARRATIVE: CASE EVENT DATE: 20210303
